FAERS Safety Report 8417001-9 (Version None)
Quarter: 2012Q2

REPORT INFORMATION
  Report Type: 
  Country: None (occurrence: None)
  Receive Date: 20120606
  Receipt Date: 20120531
  Transmission Date: 20120825
  Serious: Yes (Life-Threatening, Hospitalization)
  Sender: FDA-Public Use
  Company Number: US-ROXANE LABORATORIES, INC.-2012-RO-01351RO

PATIENT
  Age: 63 Year
  Sex: Female

DRUGS (12)
  1. ESTROPIPATE [Suspect]
     Dosage: 0.75 MG
     Route: 048
  2. MONTELUKAST [Suspect]
     Dosage: 10 MG
     Route: 048
  3. OMEPRAZOLE [Suspect]
     Dosage: 20 MG
     Route: 048
  4. LORAZEPAM [Suspect]
     Dosage: 1 MG
     Route: 048
  5. QUETIAPINE [Suspect]
     Indication: SCHIZOAFFECTIVE DISORDER BIPOLAR TYPE
     Dosage: 800 MG
  6. ATORVASTATIN CALCIUM [Suspect]
     Dosage: 10 MG
     Route: 048
  7. MEDROXYPROGESTERONE [Suspect]
     Dosage: 2.5 MG
     Route: 048
  8. SITAGLIPTIN [Suspect]
     Dosage: 100 MG
     Route: 048
  9. VITAMIN D [Suspect]
     Dosage: 2000 U
     Route: 048
  10. FAMOTIDINE [Suspect]
     Dosage: 40 MG
     Route: 048
  11. PAROXETINE [Suspect]
     Dosage: 40 MG
     Route: 048
  12. TRIHEXYPHENIDYL HCL [Suspect]
     Dosage: 7.5 MG
     Route: 048

REACTIONS (9)
  - ELECTROCARDIOGRAM QT PROLONGED [None]
  - LOBAR PNEUMONIA [None]
  - HEPATIC ENZYME INCREASED [None]
  - MOOD SWINGS [None]
  - GASTROINTESTINAL HAEMORRHAGE [None]
  - ANAEMIA [None]
  - DELIRIUM [None]
  - HYPOKALAEMIA [None]
  - CONFUSIONAL STATE [None]
